FAERS Safety Report 22303421 (Version 1)
Quarter: 2023Q2

REPORT INFORMATION
  Report Type: Spontaneous
  Country: US (occurrence: US)
  Receive Date: 20230510
  Receipt Date: 20230510
  Transmission Date: 20230721
  Serious: No
  Sender: FDA-Public Use
  Company Number: US-SA-SAC20230510000105

PATIENT
  Age: 71 Year
  Sex: Female
  Weight: 74.8 kg

DRUGS (4)
  1. KEVZARA [Suspect]
     Active Substance: SARILUMAB
     Indication: Rheumatoid arthritis
     Dosage: 200 MG, QOW
     Route: 058
  2. KINERET [Concomitant]
     Active Substance: ANAKINRA
  3. ENBREL [Concomitant]
     Active Substance: ETANERCEPT
  4. ORENCIA [Concomitant]
     Active Substance: ABATACEPT

REACTIONS (3)
  - Hypertension [Recovering/Resolving]
  - Bronchitis [Recovering/Resolving]
  - Drug ineffective [Unknown]
